FAERS Safety Report 12906633 (Version 1)
Quarter: 2016Q4

REPORT INFORMATION
  Report Type: Spontaneous
  Country: US (occurrence: US)
  Receive Date: 20161101
  Receipt Date: 20161101
  Transmission Date: 20170207
  Serious: Yes (Other)
  Sender: FDA-Public Use
  Company Number: None

PATIENT
  Age: 21 Year
  Sex: Female
  Weight: 76.5 kg

DRUGS (1)
  1. NEXPLANON [Suspect]
     Active Substance: ETONOGESTREL
     Indication: CONTRACEPTION
     Dosage: QUANTITY:1 IMPLANT;OTHER FREQUENCY:3; SUBCUTANEOUS ?
     Route: 058

REACTIONS (3)
  - Ovarian cyst [None]
  - Device breakage [None]
  - Abnormal withdrawal bleeding [None]

NARRATIVE: CASE EVENT DATE: 20140520
